FAERS Safety Report 4818805-1 (Version None)
Quarter: 2005Q4

REPORT INFORMATION
  Report Type: 
  Country: None (occurrence: None)
  Receive Date: 20051101
  Receipt Date: 20051019
  Transmission Date: 20060501
  Serious: Yes (Hospitalization, Other)
  Sender: FDA-Public Use
  Company Number: 2005147207

PATIENT
  Sex: Male

DRUGS (2)
  1. DETROL LA [Suspect]
     Indication: POLLAKIURIA
     Dosage: 4 MG (4 MG, 1 IN 1 D), ORAL
     Route: 048
     Dates: start: 20050725
  2. FLOMAX [Concomitant]

REACTIONS (5)
  - ABDOMINAL PAIN UPPER [None]
  - BLOOD URINE PRESENT [None]
  - CATHETER RELATED COMPLICATION [None]
  - DEVICE FAILURE [None]
  - URINARY RETENTION [None]
